FAERS Safety Report 19024736 (Version 1)
Quarter: 2021Q1

REPORT INFORMATION
  Report Type: Spontaneous
  Country: DE (occurrence: DE)
  Receive Date: 20210318
  Receipt Date: 20210318
  Transmission Date: 20210420
  Serious: Yes (Death, Life-Threatening, Hospitalization)
  Sender: FDA-Public Use
  Company Number: DE-TEVA-2021-DE-1890552

PATIENT
  Age: 61 Year
  Sex: Female

DRUGS (7)
  1. BISOPROLOL [Suspect]
     Active Substance: BISOPROLOL
     Indication: INTENTIONAL OVERDOSE
     Route: 048
  2. EPINEPHRINE. [Suspect]
     Active Substance: EPINEPHRINE
     Indication: CIRCULATORY COLLAPSE
     Dosage: PER MINUTE
     Route: 065
  3. AMLODIPINE [Suspect]
     Active Substance: AMLODIPINE BESYLATE
     Indication: INTENTIONAL OVERDOSE
     Route: 048
  4. METFORMIN [Suspect]
     Active Substance: METFORMIN HYDROCHLORIDE
     Indication: INTENTIONAL OVERDOSE
     Route: 048
  5. CHARCOAL [Suspect]
     Active Substance: ACTIVATED CHARCOAL
     Indication: TOXICITY TO VARIOUS AGENTS
     Route: 065
  6. NOREPINEPHRINE. [Suspect]
     Active Substance: NOREPINEPHRINE
     Indication: CIRCULATORY COLLAPSE
     Dosage: PER MINUTE
     Route: 065
  7. GLUCAGON. [Suspect]
     Active Substance: GLUCAGON
     Indication: TOXICITY TO VARIOUS AGENTS
     Route: 065

REACTIONS (8)
  - Cardiac arrest [Recovered/Resolved]
  - Lactic acidosis [Fatal]
  - Multiple organ dysfunction syndrome [Fatal]
  - Circulatory collapse [Recovered/Resolved]
  - Toxicity to various agents [Unknown]
  - Intentional overdose [Fatal]
  - Vasoplegia syndrome [Unknown]
  - Rhabdomyolysis [Unknown]
